FAERS Safety Report 5613650-1 (Version None)
Quarter: 2008Q1

REPORT INFORMATION
  Report Type: 
  Country: None (occurrence: None)
  Receive Date: 20080129
  Receipt Date: 20080118
  Transmission Date: 20080703
  Serious: Yes (Death)
  Sender: FDA-Public Use
  Company Number: 2008US000270

PATIENT
  Age: 62 Year

DRUGS (1)
  1. AMBISOME [Suspect]
     Indication: ASPERGILLOSIS
     Dosage: IV NOS
     Route: 042

REACTIONS (1)
  - HEPATIC FAILURE [None]
